FAERS Safety Report 17073738 (Version 1)
Quarter: 2019Q4

REPORT INFORMATION
  Report Type: Report from Study
  Country: DO (occurrence: DO)
  Receive Date: 20191126
  Receipt Date: 20191126
  Transmission Date: 20200122
  Serious: Yes (Hospitalization, Other)
  Sender: FDA-Public Use
  Company Number: DO-SA-2019SA260423

PATIENT
  Age: 36 Year
  Sex: Female

DRUGS (1)
  1. ALEMTUZUMAB [Suspect]
     Active Substance: ALEMTUZUMAB
     Indication: MULTIPLE SCLEROSIS
     Dosage: UNK
     Route: 041
     Dates: start: 20180327, end: 20180329

REACTIONS (12)
  - Escherichia infection [Unknown]
  - Pyrexia [Unknown]
  - Albumin urine present [Unknown]
  - Chromaturia [Unknown]
  - Neutrophil count increased [Unknown]
  - Cystitis [Recovering/Resolving]
  - Haematuria [Recovering/Resolving]
  - White blood cells urine [Unknown]
  - White blood cell count decreased [Unknown]
  - Dysuria [Recovering/Resolving]
  - Monocyte count increased [Unknown]
  - Bacterial test positive [Not Recovered/Not Resolved]

NARRATIVE: CASE EVENT DATE: 201909
